FAERS Safety Report 11792955 (Version 4)
Quarter: 2016Q1

REPORT INFORMATION
  Report Type: Report from Study
  Country: US (occurrence: US)
  Receive Date: 20151202
  Receipt Date: 20160127
  Transmission Date: 20160525
  Serious: Yes (Other)
  Sender: FDA-Public Use
  Company Number: PHEH2015US005169

PATIENT
  Age: 56 Year
  Sex: Female
  Weight: 56.69 kg

DRUGS (3)
  1. GILENYA [Suspect]
     Active Substance: FINGOLIMOD HYDROCHLORIDE
     Dosage: 0.5 MG, QD
     Route: 048
     Dates: start: 20151228
  2. GILENYA [Suspect]
     Active Substance: FINGOLIMOD HYDROCHLORIDE
     Indication: MULTIPLE SCLEROSIS
     Dosage: 0.5 MG, QD
     Route: 048
     Dates: start: 20150313
  3. GILENYA [Suspect]
     Active Substance: FINGOLIMOD HYDROCHLORIDE
     Dosage: UNK, QOD
     Route: 065
     Dates: start: 20150926

REACTIONS (14)
  - Infection [Recovering/Resolving]
  - Fall [Unknown]
  - Pruritus [Unknown]
  - Oropharyngeal pain [Unknown]
  - Pyrexia [Recovering/Resolving]
  - Prescribed underdose [Unknown]
  - Cellulitis [Unknown]
  - Feeling hot [Unknown]
  - Flushing [Unknown]
  - White blood cell count decreased [Unknown]
  - Fungal infection [Unknown]
  - Ankle fracture [Unknown]
  - Headache [Unknown]
  - Influenza [Unknown]

NARRATIVE: CASE EVENT DATE: 20150313
